FAERS Safety Report 9125525 (Version 1)
Quarter: 2013Q1

REPORT INFORMATION
  Report Type: Spontaneous
  Country: DE (occurrence: DE)
  Receive Date: 20130117
  Receipt Date: 20130117
  Transmission Date: 20140127
  Serious: Yes (Other)
  Sender: FDA-Public Use
  Company Number: DE-B.I. PHARMACEUTICALS,INC./RIDGEFIELD-2013-DE-00074DE

PATIENT
  Age: 58 Year
  Sex: Female
  Weight: 70 kg

DRUGS (5)
  1. PRADAXA [Suspect]
     Indication: ATRIAL FIBRILLATION
     Dosage: 300 MG
     Dates: start: 201207
  2. CONCOR [Concomitant]
  3. RAMIPRIL [Concomitant]
  4. FUROSEMID [Concomitant]
  5. PANTOPRAZOL [Concomitant]

REACTIONS (1)
  - Pancreatitis acute [Not Recovered/Not Resolved]
